FAERS Safety Report 4359579-0 (Version None)
Quarter: 2004Q2

REPORT INFORMATION
  Report Type: 
  Country: None (occurrence: None)
  Receive Date: 20040513
  Receipt Date: 20040428
  Transmission Date: 20050107
  Serious: Yes (Hospitalization)
  Sender: FDA-Public Use
  Company Number: K200400674

PATIENT
  Age: 84 Year
  Sex: Female

DRUGS (9)
  1. ALTACE [Suspect]
     Dosage: 2.5 MG, QD, ORAL; 20 MG, QD, ORAL, 25 MG, QD, ORAL
     Route: 048
     Dates: end: 20040426
  2. ALTACE [Suspect]
     Dosage: 2.5 MG, QD, ORAL; 20 MG, QD, ORAL, 25 MG, QD, ORAL
     Route: 048
     Dates: start: 20030401
  3. SYNTHROID [Concomitant]
  4. LIPITOR [Concomitant]
  5. FOSAMAX [Concomitant]
  6. CALCIUM WITH VITAMIN D (CALCIUM PHOSPHATE, CALCIUM SODIUM LACTATE, ERG [Concomitant]
  7. GLYBURIDE [Concomitant]
  8. AVANDIA [Concomitant]
  9. TYLENOL [Concomitant]

REACTIONS (8)
  - APHAGIA [None]
  - CHOKING [None]
  - CHRONIC OBSTRUCTIVE AIRWAYS DISEASE EXACERBATED [None]
  - DRUG INEFFECTIVE [None]
  - INSOMNIA [None]
  - PNEUMONIA [None]
  - STAPHYLOCOCCAL INFECTION [None]
  - TACHYCARDIA [None]
